FAERS Safety Report 4293505-8 (Version None)
Quarter: 2004Q1

REPORT INFORMATION
  Report Type: 
  Country: None (occurrence: None)
  Receive Date: 20040210
  Receipt Date: 20040108
  Transmission Date: 20041129
  Serious: Yes (Hospitalization)
  Sender: FDA-Public Use
  Company Number: A01200400077

PATIENT
  Age: 24 Year
  Sex: Female

DRUGS (1)
  1. (ZOLPIDEM) - TABLET - 10 MG [Suspect]
     Indication: INSOMNIA
     Dosage: 10 MG MIXED WITH  2 ML OF HOT WATER ONCE, INTRA-ARTERIAL
     Route: 013

REACTIONS (12)
  - ASPIRATION [None]
  - BLOOD PRESSURE INCREASED [None]
  - BODY TEMPERATURE DECREASED [None]
  - CYANOSIS [None]
  - GANGRENE [None]
  - HEART RATE INCREASED [None]
  - INTENTIONAL MISUSE [None]
  - LIVEDO RETICULARIS [None]
  - MEDICATION ERROR [None]
  - PAIN IN EXTREMITY [None]
  - PERIPHERAL ISCHAEMIA [None]
  - REFUSAL OF TREATMENT BY PATIENT [None]
